FAERS Safety Report 22943213 (Version 3)
Quarter: 2024Q1

REPORT INFORMATION
  Report Type: Spontaneous
  Country: DE (occurrence: DE)
  Receive Date: 20230914
  Receipt Date: 20240111
  Transmission Date: 20240409
  Serious: Yes (Other)
  Sender: FDA-Public Use
  Company Number: DE-002147023-NVSC2023DE195009

PATIENT

DRUGS (2)
  1. RUXOLITINIB [Suspect]
     Active Substance: RUXOLITINIB
     Indication: Myelofibrosis
     Dosage: UNK
     Route: 065
     Dates: start: 2014
  2. RUXOLITINIB [Suspect]
     Active Substance: RUXOLITINIB
     Dosage: 15 MG, BID
     Route: 065
     Dates: end: 202302

REACTIONS (14)
  - Skin burning sensation [Unknown]
  - Pruritus [Unknown]
  - Muscle twitching [Unknown]
  - Depression [Unknown]
  - Mast cell activation syndrome [Unknown]
  - Illness [Unknown]
  - Anxiety [Unknown]
  - Rosacea [Unknown]
  - Asthenia [Unknown]
  - Photopsia [Unknown]
  - Disturbance in attention [Unknown]
  - Diarrhoea [Unknown]
  - Drug ineffective [Unknown]
  - Nausea [Unknown]

NARRATIVE: CASE EVENT DATE: 20230101
